FAERS Safety Report 7651706-2 (Version None)
Quarter: 2011Q3

REPORT INFORMATION
  Report Type: 
  Country: None (occurrence: None)
  Receive Date: 20110802
  Receipt Date: 20110718
  Transmission Date: 20111222
  Serious: Yes (Hospitalization)
  Sender: FDA-Public Use
  Company Number: GB-WATSON-2011-11171

PATIENT
  Age: 76 Year
  Sex: Female

DRUGS (2)
  1. CIPROFLOXACIN HCL [Suspect]
     Indication: BRONCHIECTASIS
     Dosage: 800 MG, DAILY
     Route: 065
  2. PREDNISONE [Suspect]
     Indication: BRONCHIECTASIS
     Dosage: 5 MG, DAILY

REACTIONS (3)
  - DRUG INEFFECTIVE [None]
  - TENDON RUPTURE [None]
  - GASTROENTERITIS VIRAL [None]
